FAERS Safety Report 7336553-3 (Version None)
Quarter: 2011Q1

REPORT INFORMATION
  Report Type: 
  Country: None (occurrence: None)
  Receive Date: 20110307
  Receipt Date: 20110224
  Transmission Date: 20110831
  Serious: Yes (Hospitalization)
  Sender: FDA-Public Use
  Company Number: US-US-EMD SERONO, INC.-7043511

PATIENT
  Sex: Female
  Weight: 75 kg

DRUGS (2)
  1. REBIF [Suspect]
     Indication: MULTIPLE SCLEROSIS
  2. NEURONTIN [Concomitant]
     Indication: MUSCLE SPASMS

REACTIONS (1)
  - MULTIPLE SCLEROSIS RELAPSE [None]
